FAERS Safety Report 4735597-5 (Version None)
Quarter: 2005Q3

REPORT INFORMATION
  Report Type: 
  Country: None (occurrence: None)
  Receive Date: 20050803
  Receipt Date: 20050711
  Transmission Date: 20060218
  Serious: Yes (Other)
  Sender: FDA-Public Use
  Company Number: USA0507102387

PATIENT
  Age: 47 Year
  Sex: Male
  Weight: 105 kg

DRUGS (5)
  1. HUMATROPE [Suspect]
     Indication: HYPOTHALAMO-PITUITARY DISORDERS
     Dosage: 0.3 MG/1 DAY
     Dates: start: 20020101
  2. SYNTHROID [Concomitant]
  3. TESTOSTERONE [Concomitant]
  4. HYDROCORTISONE (HYDROCORTISONE   /00028601/) [Concomitant]
  5. MIRTAZAPINE [Concomitant]

REACTIONS (3)
  - CRANIOPHARYNGIOMA [None]
  - NEOPLASM RECURRENCE [None]
  - PHARMACEUTICAL PRODUCT COMPLAINT [None]
